FAERS Safety Report 5406588-6 (Version None)
Quarter: 2007Q3

REPORT INFORMATION
  Report Type: 
  Country: None (occurrence: None)
  Receive Date: 20070806
  Receipt Date: 20070725
  Transmission Date: 20080115
  Serious: Yes (Hospitalization)
  Sender: FDA-Public Use
  Company Number: PE-PFIZER INC-2007061530

PATIENT
  Age: 63 Year
  Sex: Female

DRUGS (1)
  1. SUTENT [Suspect]
     Indication: RENAL CELL CARCINOMA STAGE UNSPECIFIED
     Route: 048
     Dates: start: 20070531, end: 20070616

REACTIONS (6)
  - COGNITIVE DISORDER [None]
  - FATIGUE [None]
  - HYPERTENSION [None]
  - PIGMENTATION DISORDER [None]
  - VOMITING [None]
  - WOUND [None]
